FAERS Safety Report 6915263-8 (Version None)
Quarter: 2010Q3

REPORT INFORMATION
  Report Type: 
  Country: None (occurrence: None)
  Receive Date: 20100809
  Receipt Date: 20090901
  Transmission Date: 20110219
  Serious: No
  Sender: FDA-Public Use
  Company Number: US-ABBOTT-09P-163-0590058-00

PATIENT
  Sex: Female
  Weight: 61.29 kg

DRUGS (4)
  1. DEPAKOTE ER [Suspect]
     Indication: CONVULSION
     Route: 048
     Dates: start: 20000101, end: 20090601
  2. DEPAKOTE ER [Suspect]
     Route: 048
     Dates: start: 20090802
  3. KEPPRA [Concomitant]
     Indication: CONVULSION
     Dates: start: 20090601, end: 20090801
  4. TIZANDINE [Concomitant]
     Indication: PRODUCT USED FOR UNKNOWN INDICATION

REACTIONS (7)
  - ABDOMINAL PAIN UPPER [None]
  - DEPRESSION [None]
  - DYSPHONIA [None]
  - ILL-DEFINED DISORDER [None]
  - NAUSEA [None]
  - NEUROPATHY PERIPHERAL [None]
  - VOMITING [None]
